FAERS Safety Report 22638038 (Version 1)
Quarter: 2023Q2

REPORT INFORMATION
  Report Type: Spontaneous
  Country: US (occurrence: None)
  Receive Date: 20230623
  Receipt Date: 20230623
  Transmission Date: 20230722
  Serious: Yes (unspecified)
  Sender: FDA-Public Use
  Company Number: None

PATIENT
  Age: 76 Year
  Sex: Female
  Weight: 70.2 kg

DRUGS (2)
  1. AMLODIPINE BESYLATE [Suspect]
     Active Substance: AMLODIPINE BESYLATE
     Indication: Hypertension
     Dosage: 1 TABLET AT BEDTIME ORAL
     Route: 048
     Dates: start: 20220801
  2. PRAVASTATIN [Concomitant]
     Active Substance: PRAVASTATIN

REACTIONS (13)
  - Fatigue [None]
  - Dyspepsia [None]
  - Dyspnoea [None]
  - Abnormal dreams [None]
  - Dizziness [None]
  - Dizziness [None]
  - Pollakiuria [None]
  - Nocturia [None]
  - Heart rate increased [None]
  - Blood potassium decreased [None]
  - Hypertension [None]
  - Hypotension [None]
  - Heart rate abnormal [None]

NARRATIVE: CASE EVENT DATE: 20230619
